FAERS Safety Report 6822912-1 (Version None)
Quarter: 2010Q3

REPORT INFORMATION
  Report Type: 
  Country: None (occurrence: None)
  Receive Date: 20100708
  Receipt Date: 20100623
  Transmission Date: 20110219
  Serious: Yes (Hospitalization)
  Sender: FDA-Public Use
  Company Number: DE-WYE-H15979010

PATIENT
  Age: 55 Year
  Sex: Female
  Weight: 85 kg

DRUGS (5)
  1. PANTOZOL [Suspect]
     Indication: PROPHYLAXIS AGAINST GASTROINTESTINAL ULCER
     Route: 048
     Dates: start: 20100603, end: 20100605
  2. RAMIPRIL [Concomitant]
     Indication: HYPERTENSION
     Dosage: UNKNOWN
     Route: 048
  3. MUSARIL [Suspect]
     Indication: BACK PAIN
     Route: 048
     Dates: start: 20100603, end: 20100605
  4. KATADOLON [Suspect]
     Indication: BACK PAIN
     Route: 048
     Dates: start: 20100603, end: 20100605
  5. VOLTAREN [Suspect]
     Indication: BACK PAIN
     Route: 048
     Dates: start: 20100603, end: 20100605

REACTIONS (7)
  - BACK PAIN [None]
  - CHROMATURIA [None]
  - CONDITION AGGRAVATED [None]
  - HEPATIC LESION [None]
  - NAUSEA [None]
  - PRURITUS GENERALISED [None]
  - VOMITING [None]
